FAERS Safety Report 6238647-2 (Version None)
Quarter: 2009Q2

REPORT INFORMATION
  Report Type: 
  Country: None (occurrence: None)
  Receive Date: 20090622
  Receipt Date: 20090612
  Transmission Date: 20091009
  Serious: Yes (Other)
  Sender: FDA-Public Use
  Company Number: AU-AMGEN-QUU347807

PATIENT
  Sex: Male
  Weight: 66 kg

DRUGS (5)
  1. ARANESP [Suspect]
     Indication: DIALYSIS
     Route: 042
     Dates: start: 20071218, end: 20090520
  2. CALCIUM CARBONATE [Concomitant]
     Dates: start: 20070101
  3. MYLANTA [Concomitant]
     Dates: start: 20070101
  4. LACTULOSE [Concomitant]
     Dates: start: 20070101
  5. INSULIN [Concomitant]
     Dates: start: 20070101

REACTIONS (3)
  - APLASIA PURE RED CELL [None]
  - PANCYTOPENIA [None]
  - PARVOVIRUS B19 SEROLOGY POSITIVE [None]
